FAERS Safety Report 7294124-1 (Version None)
Quarter: 2011Q1

REPORT INFORMATION
  Report Type: 
  Country: None (occurrence: None)
  Receive Date: 20110215
  Receipt Date: 20110202
  Transmission Date: 20110831
  Serious: Yes (Life-Threatening, Hospitalization)
  Sender: FDA-Public Use
  Company Number: DE-ELI_LILLY_AND_COMPANY-DE201102000784

PATIENT
  Age: 55 Year
  Sex: Female
  Weight: 79 kg

DRUGS (5)
  1. ADCIRCA [Suspect]
     Indication: PULMONARY HYPERTENSION
     Dosage: 40 MG, UNK
     Route: 048
  2. TRACLEER [Concomitant]
     Indication: PULMONARY HYPERTENSION
     Dosage: 125 MG, 2/D
     Route: 048
  3. ASPIRIN [Concomitant]
     Indication: CORONARY ARTERY DISEASE
     Dosage: 100 MG, UNK
     Route: 048
  4. DILTIAZEM HYDROCHLORIDE [Concomitant]
     Indication: PULMONARY HYPERTENSION
     Dosage: 90 MG, 2/D
     Route: 048
  5. MARCUMAR [Concomitant]
     Indication: PULMONARY HYPERTENSION
     Route: 048

REACTIONS (3)
  - BREAST PAIN [None]
  - TROPONIN INCREASED [None]
  - INFARCTION [None]
